FAERS Safety Report 15233364 (Version 1)
Quarter: 2018Q3

REPORT INFORMATION
  Report Type: Spontaneous
  Country: CA (occurrence: CA)
  Receive Date: 20180802
  Receipt Date: 20180802
  Transmission Date: 20181010
  Serious: Yes (Other)
  Sender: FDA-Public Use
  Company Number: CA-TEVA-2018-CA-934105

PATIENT
  Age: 76 Year
  Sex: Female
  Weight: 45.4 kg

DRUGS (1)
  1. FUROSEMIDE. [Suspect]
     Active Substance: FUROSEMIDE
     Route: 048

REACTIONS (4)
  - Abdominal pain [Recovered/Resolved]
  - Pulmonary oedema [Recovered/Resolved]
  - Abdominal distension [Recovered/Resolved]
  - Dyspnoea [Recovered/Resolved]
